FAERS Safety Report 5602622-9 (Version None)
Quarter: 2008Q1

REPORT INFORMATION
  Report Type: 
  Country: None (occurrence: None)
  Receive Date: 20080125
  Receipt Date: 20080114
  Transmission Date: 20080703
  Serious: Yes (Hospitalization)
  Sender: FDA-Public Use
  Company Number: GB-ROCHE-541276

PATIENT
  Age: 59 Year
  Sex: Male
  Weight: 117.9 kg

DRUGS (15)
  1. ORLISTAT [Suspect]
     Indication: OBESITY
     Dosage: BREAK OF SEVEN DAYS
     Route: 048
     Dates: start: 20070723, end: 20071125
  2. ORLISTAT [Suspect]
     Route: 048
     Dates: start: 20071202
  3. METFORMIN HCL [Concomitant]
     Route: 048
     Dates: start: 20040101
  4. INSULIN [Concomitant]
     Dosage: DRUG NAME: GLARGINE INSULIN; FREQUENCY: 30 IU-30 IU-60 IU
     Dates: start: 20060101
  5. AMITRIPTYLINE HCL [Concomitant]
     Indication: DEPRESSION
     Route: 048
     Dates: start: 20040101
  6. RAMIPRIL [Concomitant]
     Indication: HYPERTENSION
     Route: 048
     Dates: start: 20040101
  7. ROSUVASTATIN [Concomitant]
     Route: 048
  8. CIPROFIBRATE [Concomitant]
     Route: 048
  9. ASPIRIN [Concomitant]
     Route: 048
     Dates: start: 20060101
  10. CO CODAMOL [Concomitant]
     Indication: PAIN
     Route: 048
     Dates: start: 20040101
  11. FUROSEMIDE [Concomitant]
     Dosage: INDICATION: WATER TABLETS
     Route: 048
     Dates: start: 20040101
  12. CITALOPRAM HYDROBROMIDE [Concomitant]
     Indication: DEPRESSION
     Route: 048
  13. FELODIPINE [Concomitant]
     Indication: HYPERTENSION
     Route: 048
  14. VENTOLIN [Concomitant]
     Indication: ASTHMA
     Dosage: ROUTE: SPRAY INHALER
     Route: 055
  15. EVENING PRIMROSE [Concomitant]
     Route: 048

REACTIONS (1)
  - SUBCUTANEOUS ABSCESS [None]
